FAERS Safety Report 8184726-2 (Version None)
Quarter: 2012Q1

REPORT INFORMATION
  Report Type: 
  Country: None (occurrence: None)
  Receive Date: 20120305
  Receipt Date: 20120305
  Transmission Date: 20120608
  Serious: Yes (Hospitalization)
  Sender: FDA-Public Use
  Company Number: None

PATIENT
  Sex: Female
  Weight: 72.59 kg

DRUGS (1)
  1. ERLOTINIB HYDROCHLORIDE [Suspect]
     Indication: PANCREATIC CARCINOMA
     Dosage: 150MG
     Route: 048
     Dates: start: 20120220, end: 20120301

REACTIONS (9)
  - DIARRHOEA [None]
  - ILEUS [None]
  - SMALL INTESTINAL OBSTRUCTION [None]
  - RASH [None]
  - NAUSEA [None]
  - OBSTRUCTION GASTRIC [None]
  - VOMITING [None]
  - ABDOMINAL PAIN [None]
  - GASTROENTERITIS VIRAL [None]
